FAERS Safety Report 12321125 (Version 1)
Quarter: 2016Q2

REPORT INFORMATION
  Report Type: Spontaneous
  Country: US (occurrence: US)
  Receive Date: 20160502
  Receipt Date: 20160502
  Transmission Date: 20160815
  Serious: Yes (Hospitalization, Other)
  Sender: FDA-Public Use
  Company Number: US-BEH-2016061681

PATIENT
  Age: 70 Year
  Sex: Female
  Weight: 63 kg

DRUGS (28)
  1. VITAMIN C [Concomitant]
     Active Substance: ASCORBIC ACID
  2. NASONEX [Concomitant]
     Active Substance: MOMETASONE FUROATE
  3. ESOMEPRAZOLE [Concomitant]
     Active Substance: ESOMEPRAZOLE
  4. CARTIA XT [Concomitant]
     Active Substance: DILTIAZEM HYDROCHLORIDE
  5. PREDNISONE. [Concomitant]
     Active Substance: PREDNISONE
  6. XOPENEX [Concomitant]
     Active Substance: LEVALBUTEROL HYDROCHLORIDE
  7. CENTRUM [Concomitant]
     Active Substance: VITAMINS
  8. MONTELUKAST [Concomitant]
     Active Substance: MONTELUKAST SODIUM
  9. CITRACAL [Concomitant]
     Active Substance: CALCIUM CITRATE
  10. HIZENTRA [Suspect]
     Active Substance: HUMAN IMMUNOGLOBULIN G
     Indication: IMMUNODEFICIENCY COMMON VARIABLE
     Route: 058
  11. GAS-X [Concomitant]
     Active Substance: DIMETHICONE
  12. LORAZEPAM. [Concomitant]
     Active Substance: LORAZEPAM
  13. HYDROCHLOROTHIAZIDE. [Concomitant]
     Active Substance: HYDROCHLOROTHIAZIDE
  14. COD LIVER OIL [Concomitant]
     Active Substance: COD LIVER OIL
  15. ASPIRIN. [Concomitant]
     Active Substance: ASPIRIN
  16. HIZENTRA [Suspect]
     Active Substance: HUMAN IMMUNOGLOBULIN G
     Route: 058
  17. HIZENTRA [Suspect]
     Active Substance: HUMAN IMMUNOGLOBULIN G
     Route: 058
     Dates: start: 20160127
  18. HIZENTRA [Suspect]
     Active Substance: HUMAN IMMUNOGLOBULIN G
     Route: 058
  19. ZYRTEC [Concomitant]
     Active Substance: CETIRIZINE HYDROCHLORIDE
  20. ASCORBIC ACID. [Concomitant]
     Active Substance: ASCORBIC ACID
  21. ALENDRONATE [Concomitant]
     Active Substance: ALENDRONATE SODIUM
  22. BIOTIN [Concomitant]
     Active Substance: BIOTIN
  23. MUCINEX [Concomitant]
     Active Substance: GUAIFENESIN
  24. XOLAIR [Concomitant]
     Active Substance: OMALIZUMAB
  25. OXYGEN. [Concomitant]
     Active Substance: OXYGEN
  26. DULCOLAX NOS [Concomitant]
     Active Substance: BISACODYL OR DOCUSATE SODIUM
  27. ADVAIR HFA [Concomitant]
     Active Substance: FLUTICASONE PROPIONATE\SALMETEROL XINAFOATE
  28. SPIRIVA [Concomitant]
     Active Substance: TIOTROPIUM BROMIDE MONOHYDRATE

REACTIONS (2)
  - Cataract [Unknown]
  - Cataract operation [Unknown]

NARRATIVE: CASE EVENT DATE: 20160418
